FAERS Safety Report 7331934-6 (Version None)
Quarter: 2011Q1

REPORT INFORMATION
  Report Type: 
  Country: None (occurrence: None)
  Receive Date: 20110304
  Receipt Date: 20100222
  Transmission Date: 20110831
  Serious: Yes (Other)
  Sender: FDA-Public Use
  Company Number: US-PFIZER INC-2010025791

PATIENT
  Sex: Female
  Weight: 45.359 kg

DRUGS (3)
  1. DILANTIN [Suspect]
     Indication: CONVULSION
     Dosage: 90 MG, 1X/DAY
  2. PHENYTOIN [Suspect]
     Indication: CONVULSION
     Dosage: 100 MG, 1X/DAY AT NIGHT
  3. PREMPRO [Concomitant]
     Dosage: UNK

REACTIONS (2)
  - CONVULSION [None]
  - TREMOR [None]
